FAERS Safety Report 21481563 (Version 1)
Quarter: 2022Q4

REPORT INFORMATION
  Report Type: Spontaneous
  Country: US (occurrence: US)
  Receive Date: 20221020
  Receipt Date: 20221020
  Transmission Date: 20230113
  Serious: No
  Sender: FDA-Public Use
  Company Number: US-PURDUE-USA-2022-0296489

PATIENT
  Sex: Female

DRUGS (1)
  1. DEXTROAMPHET SACCHARAT, AMPHET ASPARTATE, DEXTROAMPHET SULFATE AND AMP [Suspect]
     Active Substance: AMPHETAMINE ASPARTATE\AMPHETAMINE SULFATE\DEXTROAMPHETAMINE SACCHARATE\DEXTROAMPHETAMINE SULFATE
     Indication: Attention deficit hyperactivity disorder
     Dosage: 0.5 AND SOMETIMES 1 TABLET, DAILY
     Route: 048

REACTIONS (5)
  - Feeling abnormal [Unknown]
  - Wrong technique in product usage process [Unknown]
  - Stress [Unknown]
  - Gluten sensitivity [Recovered/Resolved]
  - Abdominal distension [Recovered/Resolved]
